FAERS Safety Report 17362318 (Version 2)
Quarter: 2020Q1

REPORT INFORMATION
  Report Type: Spontaneous
  Country: FR (occurrence: FR)
  Receive Date: 20200203
  Receipt Date: 20200206
  Transmission Date: 20200409
  Serious: Yes (Other)
  Sender: FDA-Public Use
  Company Number: FR-MYLANLABS-2020M1011299

PATIENT
  Age: 55 Year
  Sex: Female

DRUGS (2)
  1. ROPIVACAINE. [Suspect]
     Active Substance: ROPIVACAINE HYDROCHLORIDE
     Indication: ANAESTHESIA
     Dosage: 5 MILLIGRAM PER MILLILITRE
     Route: 051
  2. LIDOCAINE HYDROCHLORIDE. [Suspect]
     Active Substance: LIDOCAINE HYDROCHLORIDE
     Indication: ANAESTHESIA
     Dosage: 20 MG/ML, SINGLE
     Route: 051

REACTIONS (9)
  - Dizziness [Recovered/Resolved]
  - Wrong technique in product usage process [Unknown]
  - Dysphagia [Recovered/Resolved]
  - Dysgeusia [Recovered/Resolved]
  - Anxiety [Unknown]
  - Insomnia [Unknown]
  - Dysphonia [Recovered/Resolved]
  - Anaesthetic complication neurological [Not Recovered/Not Resolved]
  - Eyelid ptosis [Recovered/Resolved]
